FAERS Safety Report 5445511-5 (Version None)
Quarter: 2007Q3

REPORT INFORMATION
  Report Type: 
  Country: None (occurrence: None)
  Receive Date: 20070906
  Receipt Date: 20070830
  Transmission Date: 20080115
  Serious: Yes (Hospitalization)
  Sender: FDA-Public Use
  Company Number: BR-BOEHRINGER INGELHEIM PHARMACEUTICALS, INC.-2007-BP-19972BR

PATIENT
  Age: 56 Year
  Sex: Male

DRUGS (3)
  1. SECOTEX [Suspect]
     Indication: BENIGN PROSTATIC HYPERPLASIA
     Route: 048
  2. DICLOFENACO [Concomitant]
  3. CONCHISINA [Concomitant]

REACTIONS (1)
  - ATRIOVENTRICULAR BLOCK [None]
